FAERS Safety Report 7410228-4 (Version None)
Quarter: 2011Q2

REPORT INFORMATION
  Report Type: 
  Country: None (occurrence: None)
  Receive Date: 20110412
  Receipt Date: 20110330
  Transmission Date: 20111010
  Serious: Yes (Other)
  Sender: FDA-Public Use
  Company Number: US-WATSON-2011-04417

PATIENT
  Age: 22 Year
  Sex: Female

DRUGS (1)
  1. CIPROFLOXACIN HCL [Suspect]
     Indication: PYELONEPHRITIS
     Dosage: 500 MG, BID
     Route: 048

REACTIONS (7)
  - DIPLOPIA [None]
  - BENIGN INTRACRANIAL HYPERTENSION [None]
  - STRABISMUS [None]
  - LUMBAR PUNCTURE ABNORMAL [None]
  - VISION BLURRED [None]
  - PAPILLOEDEMA [None]
  - HEADACHE [None]
